FAERS Safety Report 17870650 (Version 2)
Quarter: 2020Q3

REPORT INFORMATION
  Report Type: Spontaneous
  Country: CN (occurrence: CN)
  Receive Date: 20200608
  Receipt Date: 20200910
  Transmission Date: 20201104
  Serious: Yes (Hospitalization)
  Sender: FDA-Public Use
  Company Number: CN-CELGENEUS-CHN-20191201556

PATIENT
  Age: 65 Year
  Sex: Male
  Weight: 55 kg

DRUGS (20)
  1. RECOMBINANT HUMAN GRANULOCYTE COLONY STIMULATING FACTOR [Concomitant]
     Active Substance: GRANULOCYTE COLONY-STIMULATING FACTOR NOS
     Dosage: 600 MICROGRAM
     Route: 030
     Dates: start: 20191204, end: 20191204
  2. SERPLULIMAB. [Suspect]
     Active Substance: SERPLULIMAB
     Route: 041
     Dates: start: 20191210
  3. SHENG XUE BAO HE JI [Concomitant]
     Indication: ANAEMIA
     Dosage: 45 MILLILITER
     Route: 048
     Dates: start: 20191205, end: 20191206
  4. RECOMBINANT HUMAN GRANULOCYTE COLONY STIMULATING FACTOR [Concomitant]
     Active Substance: GRANULOCYTE COLONY-STIMULATING FACTOR NOS
     Route: 030
     Dates: start: 20191206, end: 20191206
  5. DI YU SHENG BAI PIAN [Concomitant]
     Indication: WHITE BLOOD CELL COUNT DECREASED
     Dosage: 12 TABLET
     Route: 048
     Dates: start: 20191125, end: 20191201
  6. ABRAXANE [Suspect]
     Active Substance: PACLITAXEL
     Dosage: 75% OF PLANNED DOSE
     Route: 041
     Dates: start: 20191210
  7. DI YU SHENG BAI PIAN [Concomitant]
     Indication: FEBRILE NEUTROPENIA
     Dosage: 4 TABLETS/TIME
     Route: 048
     Dates: start: 20191202
  8. RECOMBINANT HUMAN GRANULOCYTE COLONY STIMULATING FACTOR [Concomitant]
     Active Substance: GRANULOCYTE COLONY-STIMULATING FACTOR NOS
     Route: 030
     Dates: start: 20191125, end: 20191125
  9. TROPISETRON HYDROCHLORIDE [Concomitant]
     Active Substance: TROPISETRON HYDROCHLORIDE
     Indication: PROPHYLAXIS
     Route: 030
     Dates: start: 20191126, end: 20191126
  10. SERPLULIMAB. [Suspect]
     Active Substance: SERPLULIMAB
     Dosage: 252 MILLIGRAM
     Route: 041
     Dates: start: 20191119, end: 20191119
  11. CARBOPLATIN. [Suspect]
     Active Substance: CARBOPLATIN
     Dosage: 75% OF PLANNED DOSE
     Route: 041
     Dates: start: 20191210
  12. RECOMBINANT HUMAN GRANULOCYTE COLONY STIMULATING FACTOR [Concomitant]
     Active Substance: GRANULOCYTE COLONY-STIMULATING FACTOR NOS
     Dosage: 600 MICROGRAM
     Route: 030
     Dates: start: 20191205, end: 20191205
  13. ABRAXANE [Suspect]
     Active Substance: PACLITAXEL
     Indication: NON-SMALL CELL LUNG CANCER
     Dosage: 100 MILLIGRAM/SQ. METER
     Route: 041
     Dates: start: 20191018, end: 20191126
  14. SERPLULIMAB. [Suspect]
     Active Substance: SERPLULIMAB
     Indication: NON-SMALL CELL LUNG CANCER
     Dosage: 4.5 MILLIGRAM/KILOGRAM
     Route: 041
     Dates: start: 20191018, end: 20191018
  15. RECOMBINANT HUMAN GRANULOCYTE COLONY STIMULATING FACTOR [Concomitant]
     Active Substance: GRANULOCYTE COLONY-STIMULATING FACTOR NOS
     Indication: FEBRILE NEUTROPENIA
     Dosage: 600 MICROGRAM
     Route: 030
     Dates: start: 20191202, end: 20191202
  16. RECOMBINANT HUMAN GRANULOCYTE COLONY STIMULATING FACTOR [Concomitant]
     Active Substance: GRANULOCYTE COLONY-STIMULATING FACTOR NOS
     Indication: WHITE BLOOD CELL COUNT DECREASED
     Dosage: 600 MICROGRAM
     Route: 030
     Dates: start: 20191203, end: 20191203
  17. PANTOPRAZOLE SODIUM. [Concomitant]
     Active Substance: PANTOPRAZOLE SODIUM
     Indication: PROPHYLAXIS
     Route: 030
     Dates: start: 20191126, end: 20191126
  18. CARBOPLATIN. [Suspect]
     Active Substance: CARBOPLATIN
     Indication: NON-SMALL CELL LUNG CANCER
     Dosage: 5AUC
     Route: 041
     Dates: start: 20191018, end: 20191119
  19. SHENG XUE BAO HE JI [Concomitant]
     Dosage: 45 MILLILITER
     Route: 048
     Dates: start: 20191209
  20. SHENG XUE BAO HE JI [Concomitant]
     Dosage: 45 MILLILITER
     Route: 048
     Dates: start: 20191127

REACTIONS (2)
  - Febrile neutropenia [Recovered/Resolved]
  - Myelosuppression [Recovered/Resolved]

NARRATIVE: CASE EVENT DATE: 20191202
